FAERS Safety Report 7628012-5 (Version None)
Quarter: 2011Q3

REPORT INFORMATION
  Report Type: 
  Country: None (occurrence: None)
  Receive Date: 20110722
  Receipt Date: 20110713
  Transmission Date: 20111222
  Serious: No
  Sender: FDA-Public Use
  Company Number: US-BIOGENIDEC-2010BI036037

PATIENT
  Sex: Male

DRUGS (1)
  1. TYSABRI [Suspect]
     Indication: MULTIPLE SCLEROSIS
     Route: 042
     Dates: start: 20090422, end: 20110620

REACTIONS (7)
  - AGRAPHIA [None]
  - ASTHENIA [None]
  - MALAISE [None]
  - HYPERHIDROSIS [None]
  - COORDINATION ABNORMAL [None]
  - PAIN IN EXTREMITY [None]
  - OEDEMA PERIPHERAL [None]
